FAERS Safety Report 8229794-4 (Version None)
Quarter: 2012Q1

REPORT INFORMATION
  Report Type: 
  Country: None (occurrence: None)
  Receive Date: 20120322
  Receipt Date: 20120309
  Transmission Date: 20120608
  Serious: Yes (Other)
  Sender: FDA-Public Use
  Company Number: DE-MYLANLABS-2012S1005291

PATIENT
  Age: 32 Year
  Sex: Male

DRUGS (8)
  1. CLOZAPINE [Suspect]
     Indication: PRODUCT USED FOR UNKNOWN INDICATION
     Dosage: DAILY DOSE: 175 MG MILLIGRAM(S) EVERY DAY
     Route: 048
     Dates: end: 20120112
  2. PERPHENAZINE [Suspect]
     Dosage: DAILY DOSE: 88 MG MILLIGRAM(S) EVERY DAY
     Route: 048
     Dates: start: 20120118
  3. LORAZEPAM [Concomitant]
     Indication: PRODUCT USED FOR UNKNOWN INDICATION
     Route: 048
     Dates: start: 20120106
  4. ZOLPIDEM [Suspect]
     Indication: PRODUCT USED FOR UNKNOWN INDICATION
     Dosage: DAILY DOSE: 10 MG MILLIGRAM(S) EVERY DAY
     Route: 048
     Dates: start: 20120106
  5. AKINETON [Suspect]
     Indication: PRODUCT USED FOR UNKNOWN INDICATION
     Dosage: DAILY DOSE: 4 MG MILLIGRAM(S) EVERY DAY
     Route: 048
  6. PERPHENAZINE [Suspect]
     Indication: PRODUCT USED FOR UNKNOWN INDICATION
     Dosage: DAILY DOSE: 72 MG MILLIGRAM(S) EVERY DAY
     Route: 048
     Dates: end: 20120111
  7. PERPHENAZINE [Suspect]
     Dosage: DAILY DOSE: 80 MG MILLIGRAM(S) EVERY DAY
     Route: 048
     Dates: start: 20120112, end: 20120117
  8. CLOZAPINE [Suspect]
     Dosage: DAILY DOSE: 150 MG MILLIGRAM(S) EVERY DAY
     Route: 048
     Dates: start: 20120113

REACTIONS (2)
  - URINARY HESITATION [None]
  - URINARY INCONTINENCE [None]
